FAERS Safety Report 7973629-1 (Version None)
Quarter: 2011Q4

REPORT INFORMATION
  Report Type: 
  Country: None (occurrence: None)
  Receive Date: 20111213
  Receipt Date: 20111212
  Transmission Date: 20120403
  Serious: Yes (Hospitalization)
  Sender: FDA-Public Use
  Company Number: IT-ROCHE-1021021

PATIENT

DRUGS (2)
  1. ANTIDEPRESSANT [Concomitant]
  2. AVASTIN [Suspect]
     Indication: NON-SMALL CELL LUNG CANCER
     Route: 042
     Dates: start: 20101027, end: 20110504

REACTIONS (1)
  - MOOD ALTERED [None]
